FAERS Safety Report 4503327-8 (Version None)
Quarter: 2004Q4

REPORT INFORMATION
  Report Type: 
  Country: None (occurrence: None)
  Receive Date: 20041112
  Receipt Date: 20041102
  Transmission Date: 20050328
  Serious: Yes (Life-Threatening, Hospitalization)
  Sender: FDA-Public Use
  Company Number: DEU-2004-0000912

PATIENT
  Age: 76 Year
  Sex: Female
  Weight: 72 kg

DRUGS (5)
  1. OXYGESIC 10 MG (OXY CR TAB 10 MG) (OXYCODONE HYDROCHLORIDE) CR TABLET [Suspect]
     Indication: PAIN
     Dosage: 10 MG, BID, ORAL
     Route: 048
     Dates: start: 20040511, end: 20040603
  2. NIFEDIPINE [Concomitant]
  3. IBUPROFEN [Concomitant]
  4. THYRONAJOD (POTASSIUM IODIDE, LEVOTHYROXINE SODIUM) [Concomitant]
  5. INSUMAN COMB 25 (INSULIN HUMAN) [Concomitant]

REACTIONS (2)
  - CORONARY ARTERY OCCLUSION [None]
  - MYOCARDIAL INFARCTION [None]
